FAERS Safety Report 9651614 (Version 1)
Quarter: 2013Q4

REPORT INFORMATION
  Report Type: Spontaneous
  Country: US (occurrence: US)
  Receive Date: 20131029
  Receipt Date: 20131029
  Transmission Date: 20140711
  Serious: No
  Sender: FDA-Public Use
  Company Number: US-BIOGENIDEC-2013BI073138

PATIENT
  Age: 54 Year
  Sex: Female

DRUGS (5)
  1. TECFIDERA [Suspect]
     Indication: MULTIPLE SCLEROSIS
     Route: 048
     Dates: start: 20130520
  2. BUPROPION [Concomitant]
  3. HCL [Concomitant]
  4. GABAPENTIN [Concomitant]
  5. ALPRAZOLAM [Concomitant]

REACTIONS (1)
  - Gastrooesophageal reflux disease [Unknown]
